FAERS Safety Report 9422429 (Version 1)
Quarter: 2013Q3

REPORT INFORMATION
  Report Type: Spontaneous
  Country: US (occurrence: US)
  Receive Date: 20130724
  Receipt Date: 20130724
  Transmission Date: 20140515
  Serious: Yes (Death, Other)
  Sender: FDA-Public Use
  Company Number: AUR-APL-2013-05969

PATIENT
  Age: 56 Year
  Sex: Female

DRUGS (6)
  1. ZOLPIDEM [Suspect]
     Indication: PRODUCT USED FOR UNKNOWN INDICATION
     Route: 048
  2. HYDROXYZINE PAMOATE [Suspect]
     Indication: PRODUCT USED FOR UNKNOWN INDICATION
     Dosage: 58 (50 MG TABLETS) WERE TAKEN OVER 11 DAYS SINCE THE LAST PRESCRIPTION WAS DISPENSED.
     Route: 048
  3. CITALOPRAM (CITALOPRAM) [Concomitant]
  4. NAPROXEN (NAPROXEN) [Concomitant]
  5. LORAZEPAM (LORAZEPAM) [Concomitant]
  6. DICYCLOMINE (DICYCLOVERINE) [Concomitant]

REACTIONS (6)
  - Completed suicide [None]
  - Obesity [None]
  - Cardiomegaly [None]
  - Dilatation ventricular [None]
  - Incorrect dose administered [None]
  - Toxicity to various agents [None]
